FAERS Safety Report 8966724 (Version 5)
Quarter: 2014Q1

REPORT INFORMATION
  Report Type: Report from Study
  Country: US (occurrence: US)
  Receive Date: 20121214
  Receipt Date: 20140213
  Transmission Date: 20141002
  Serious: Yes (Death, Life-Threatening, Hospitalization)
  Sender: FDA-Public Use
  Company Number: US-MERCK-1212USA004669

PATIENT
  Age: 28 Year
  Sex: Male
  Weight: 105.1 kg

DRUGS (5)
  1. VORINOSTAT [Suspect]
     Indication: HODGKIN^S DISEASE REFRACTORY
     Dosage: 200 MG, BID, DAY 1-14 (COURSE 1)
     Route: 048
     Dates: start: 20121128
  2. VORINOSTAT [Suspect]
     Dosage: 150 MG, BID,  DAY 1-14 (COURSE 15)
     Route: 048
     Dates: start: 20131203
  3. MLN8237 [Suspect]
     Indication: HODGKIN^S DISEASE REFRACTORY
     Dosage: 40 MG, BID, DAY 1-7
     Route: 048
     Dates: start: 20121128
  4. MLN8237 [Suspect]
     Dosage: 20 MG, BID ON DAYS 1-7(CYCLE 15)
     Route: 048
     Dates: start: 20131203
  5. BRENTUXIMAB VEDOTIN [Suspect]
     Dosage: UNK
     Dates: start: 20131227

REACTIONS (8)
  - Febrile neutropenia [Recovered/Resolved]
  - Platelet count decreased [Recovered/Resolved]
  - White blood cell count decreased [Recovered/Resolved]
  - Dehydration [Unknown]
  - Nausea [Unknown]
  - Vomiting [Unknown]
  - Respiratory failure [Fatal]
  - Pancreatitis [Not Recovered/Not Resolved]
